FAERS Safety Report 25912380 (Version 1)
Quarter: 2025Q4

REPORT INFORMATION
  Report Type: Report from Study
  Country: US (occurrence: US)
  Receive Date: 20251013
  Receipt Date: 20251013
  Transmission Date: 20260118
  Serious: Yes (Hospitalization)
  Sender: TEVA
  Company Number: US-TEVA-VS-3379577

PATIENT
  Age: 54 Year
  Sex: Female
  Weight: 105 kg

DRUGS (4)
  1. LEUCOVORIN CALCIUM [Suspect]
     Active Substance: LEUCOVORIN CALCIUM
     Indication: Product used for unknown indication
     Dosage: TOTAL DOSE (CONTINUED)
     Route: 065
     Dates: start: 20250811, end: 20250908
  2. BINIMETINIB [Suspect]
     Active Substance: BINIMETINIB
     Indication: Product used for unknown indication
     Dosage: TOTAL DOSE (CONTINUED)
     Route: 065
     Dates: start: 20250813, end: 20250912
  3. FLUOROURACIL [Suspect]
     Active Substance: FLUOROURACIL
     Indication: Product used for unknown indication
     Dosage: TOTAL DOSE (CONTINUED)
     Route: 065
     Dates: start: 20250811, end: 20250908
  4. ELOXATIN [Suspect]
     Active Substance: OXALIPLATIN
     Indication: Product used for unknown indication
     Dosage: TOTAL DOSE (CONTINUED)
     Route: 065
     Dates: start: 20250811, end: 20250908

REACTIONS (1)
  - Sepsis [Recovered/Resolved]

NARRATIVE: CASE EVENT DATE: 20250912
